FAERS Safety Report 5399084-6 (Version None)
Quarter: 2007Q3

REPORT INFORMATION
  Report Type: 
  Country: None (occurrence: None)
  Receive Date: 20070727
  Receipt Date: 20060719
  Transmission Date: 20080115
  Serious: No
  Sender: FDA-Public Use
  Company Number: A0612810A

PATIENT
  Sex: Female

DRUGS (5)
  1. LOTRONEX [Suspect]
     Indication: IRRITABLE BOWEL SYNDROME
     Dosage: .5MG ALTERNATE DAYS
     Route: 048
     Dates: start: 20060710
  2. PEPCID [Concomitant]
  3. BENTYL [Concomitant]
  4. ADVAIR DISKUS 100/50 [Concomitant]
  5. MYLANTA [Concomitant]

REACTIONS (2)
  - DRUG INEFFECTIVE [None]
  - FREQUENT BOWEL MOVEMENTS [None]
